FAERS Safety Report 12870776 (Version 1)
Quarter: 2016Q4

REPORT INFORMATION
  Report Type: Spontaneous
  Country: US (occurrence: US)
  Receive Date: 20161020
  Receipt Date: 20161020
  Transmission Date: 20170207
  Serious: Yes (Life-Threatening)
  Sender: FDA-Public Use
  Company Number: None

PATIENT
  Age: 69 Year
  Sex: Female
  Weight: 74.25 kg

DRUGS (22)
  1. LOX [Concomitant]
  2. VITAMIN D3 [Concomitant]
     Active Substance: CHOLECALCIFEROL
  3. ASPIRIN. [Concomitant]
     Active Substance: ASPIRIN
  4. LISINOPRIL. [Concomitant]
     Active Substance: LISINOPRIL
  5. MAGNESIUM [Concomitant]
     Active Substance: MAGNESIUM
  6. CARVEDILOL. [Concomitant]
     Active Substance: CARVEDILOL
  7. LANTUS [Suspect]
     Active Substance: INSULIN GLARGINE
     Indication: TYPE 1 DIABETES MELLITUS
     Dosage: ?          QUANTITY:10 INJECTION(S);?
     Route: 058
     Dates: start: 20160914, end: 20161018
  8. LEVOTHYROXINE SODIUM. [Suspect]
     Active Substance: LEVOTHYROXINE SODIUM
  9. NIACIN. [Concomitant]
     Active Substance: NIACIN
  10. METAMUCIL [Concomitant]
     Active Substance: PLANTAGO SEED
  11. OP4 PROBIOTICS [Concomitant]
  12. STERILE WATER [Concomitant]
     Active Substance: WATER
  13. FOLIC ACID. [Concomitant]
     Active Substance: FOLIC ACID
  14. COQ10 [Concomitant]
     Active Substance: UBIDECARENONE
  15. TURMERIC [Concomitant]
     Active Substance: TURMERIC
  16. POTASSIUM [Concomitant]
     Active Substance: POTASSIUM
  17. L-LYSINE [Concomitant]
     Active Substance: LYSINE
  18. GALLIUM NITRATE [Concomitant]
     Active Substance: GALLIUM NITRATE
  19. CHELATED ZINC [Concomitant]
  20. SENNA TEA [Concomitant]
  21. HUMALOG [Suspect]
     Active Substance: INSULIN LISPRO
     Indication: PRODUCT USED FOR UNKNOWN INDICATION
     Dosage: ?          QUANTITY:5 100 UNITS;?
     Route: 058
     Dates: start: 20160831, end: 20161017
  22. LEVALBUTEROL. [Concomitant]
     Active Substance: LEVALBUTEROL

REACTIONS (7)
  - Ear pain [None]
  - Hypersensitivity [None]
  - Bronchitis [None]
  - Fluid retention [None]
  - Choking [None]
  - Hypoglycaemia [None]
  - Adverse drug reaction [None]

NARRATIVE: CASE EVENT DATE: 20161018
